FAERS Safety Report 8957965 (Version 1)
Quarter: 2012Q4

REPORT INFORMATION
  Report Type: 
  Country: US (occurrence: US)
  Receive Date: 20121211
  Receipt Date: 20121211
  Transmission Date: 20130627
  Serious: No
  Sender: FDA-Public Use
  Company Number: US-ABBOTT-12P-163-1013249-00

PATIENT
  Sex: Male

DRUGS (1)
  1. VICODIN ES [Suspect]
     Indication: PAIN MANAGEMENT

REACTIONS (2)
  - Haemorrhage [Unknown]
  - Rash [Unknown]
